FAERS Safety Report 8037880-7 (Version None)
Quarter: 2012Q1

REPORT INFORMATION
  Report Type: 
  Country: None (occurrence: None)
  Receive Date: 20120111
  Receipt Date: 20111229
  Transmission Date: 20120608
  Serious: Yes (Death, Hospitalization, Other)
  Sender: FDA-Public Use
  Company Number: US-ROCHE-GNE245520

PATIENT
  Sex: Female
  Weight: 46.75 kg

DRUGS (49)
  1. MABTHERA [Suspect]
     Dosage: GIVEN ON DAYS 1 + 15
     Route: 042
     Dates: start: 20040316
  2. DOXYCYCLINE [Concomitant]
     Indication: ANTIVIRAL PROPHYLAXIS
     Dates: start: 20050101
  3. CALCIUM/VITAMIN D [Concomitant]
     Indication: PRODUCT USED FOR UNKNOWN INDICATION
     Dates: start: 19990101
  4. DARVOCET [Concomitant]
     Indication: RHEUMATOID ARTHRITIS
  5. LEVOTHYROXINE SODIUM [Concomitant]
     Indication: PRODUCT USED FOR UNKNOWN INDICATION
  6. REGLAN [Concomitant]
     Dates: start: 20080401, end: 20080501
  7. MABTHERA [Suspect]
     Dosage: GIVEN ON DAYS 1 + 15
     Route: 042
     Dates: start: 20041220
  8. METHOTREXATE [Concomitant]
     Indication: RHEUMATOID ARTHRITIS
     Dates: start: 20000101, end: 20050214
  9. LOVENOX [Concomitant]
     Indication: THROMBOSIS PROPHYLAXIS
     Dates: start: 20060424
  10. LODINE [Concomitant]
     Indication: PRODUCT USED FOR UNKNOWN INDICATION
  11. DECADRON [Concomitant]
     Dates: start: 20070801, end: 20071101
  12. METHYLPREDNISOLONE [Suspect]
     Indication: RHEUMATOID ARTHRITIS
     Dosage: GIVEN ON DAYS 1 + 15
     Route: 042
     Dates: start: 20030701
  13. PREDNISONE TAB [Suspect]
  14. SYNTHROID [Concomitant]
     Indication: PRODUCT USED FOR UNKNOWN INDICATION
     Dates: start: 19950101
  15. PROVIGIL [Concomitant]
     Indication: PRODUCT USED FOR UNKNOWN INDICATION
  16. LEVAQUIN [Concomitant]
  17. OXYCONTIN [Concomitant]
     Dates: start: 20070901
  18. PREDNISONE TAB [Suspect]
     Dosage: GIVEN ON DAYS 2-14
     Route: 048
     Dates: start: 20030701
  19. CARBOPLATIN [Suspect]
     Indication: TONSIL CANCER
     Dates: start: 20070807, end: 20070921
  20. ACYCLOVIR [Concomitant]
     Indication: PRODUCT USED FOR UNKNOWN INDICATION
     Route: 048
     Dates: start: 20050301
  21. FOLIC ACID [Concomitant]
     Indication: RHEUMATOID ARTHRITIS
     Dates: start: 19950101
  22. PREDNISONE TAB [Suspect]
     Dosage: 100 MG, DAYS 1+15
     Route: 048
     Dates: start: 20061102
  23. DOXYCYCLINE [Concomitant]
     Dates: start: 20050322
  24. ESTRATEST [Concomitant]
     Indication: PRODUCT USED FOR UNKNOWN INDICATION
     Dates: start: 19890101
  25. RANITIDINE [Concomitant]
     Indication: PRODUCT USED FOR UNKNOWN INDICATION
     Dates: start: 20080401, end: 20080501
  26. MABTHERA [Suspect]
     Dosage: GIVEN ON DAYS 1 + 15
     Route: 042
     Dates: start: 20030907, end: 20031009
  27. METHYLPREDNISOLONE [Suspect]
     Dosage: GIVEN ON DAYS 1 + 15
     Route: 042
     Dates: start: 20040316
  28. METHYLPREDNISOLONE [Suspect]
     Dosage: 100 MG, DAYS 1+15
     Route: 042
     Dates: start: 20061102
  29. PREDNISONE TAB [Suspect]
     Dosage: 60MG X 6 DAYS AND 30MG X 7 DAYS (GIVEN ON DAYS 2 TO 14)
     Route: 048
     Dates: start: 20040517
  30. VIGAMOX [Concomitant]
     Dates: start: 20060215
  31. METHOTREXATE [Concomitant]
     Dates: start: 20050221
  32. FOLIC ACID [Concomitant]
     Dates: start: 20040212
  33. ACETAMINOPHEN [Concomitant]
  34. MABTHERA [Suspect]
     Indication: RHEUMATOID ARTHRITIS
     Dosage: GIVEN ON DAYS 1 + 15
     Route: 042
     Dates: start: 20030701
  35. PREDNISONE TAB [Suspect]
     Indication: RHEUMATOID ARTHRITIS
     Route: 048
     Dates: start: 19950101
  36. PREDNISONE TAB [Suspect]
     Dosage: UNK TABLET, DAYS 2-14
     Route: 048
     Dates: start: 20060121
  37. ARMODAFINIL [Concomitant]
     Indication: PRODUCT USED FOR UNKNOWN INDICATION
     Dates: start: 20070201
  38. ACYCLOVIR [Concomitant]
     Dosage: 400 MG, UNK
     Route: 048
     Dates: start: 20061101
  39. VIGAMOX [Concomitant]
     Indication: PRODUCT USED FOR UNKNOWN INDICATION
     Dates: start: 20050101
  40. CLINDAMYCIN HCL [Concomitant]
     Indication: PRODUCT USED FOR UNKNOWN INDICATION
  41. CYMBALTA [Concomitant]
     Indication: PRODUCT USED FOR UNKNOWN INDICATION
  42. ESTROGENIC SUBSTANCE [Concomitant]
     Indication: PRODUCT USED FOR UNKNOWN INDICATION
  43. FLUCONAZOLE [Concomitant]
     Indication: PRODUCT USED FOR UNKNOWN INDICATION
  44. RADIATION THERAPY [Concomitant]
     Indication: PRODUCT USED FOR UNKNOWN INDICATION
     Dates: start: 20070808, end: 20070924
  45. NEXIUM [Concomitant]
     Dates: start: 20080208, end: 20080401
  46. MABTHERA [Suspect]
     Dosage: GIVEN ON DAYS 1 + 15
     Route: 042
     Dates: start: 20061102
  47. CETUXIMAB [Suspect]
     Indication: TONSIL CANCER
     Dates: start: 20070807, end: 20070921
  48. INVANZ [Concomitant]
     Indication: PRODUCT USED FOR UNKNOWN INDICATION
  49. LOTRISONE [Concomitant]
     Indication: PRODUCT USED FOR UNKNOWN INDICATION

REACTIONS (11)
  - PHARYNGEAL INFLAMMATION [None]
  - PROGRESSIVE MULTIFOCAL LEUKOENCEPHALOPATHY [None]
  - ACUTE SINUSITIS [None]
  - CATHETER SITE INFECTION [None]
  - OROPHARYNGEAL CANCER STAGE UNSPECIFIED [None]
  - STAPHYLOCOCCAL INFECTION [None]
  - DYSPHAGIA [None]
  - VENOUS THROMBOSIS LIMB [None]
  - PNEUMONIA BACTERIAL [None]
  - PYREXIA [None]
  - BACTERAEMIA [None]
